APPROVED DRUG PRODUCT: VASOSTRICT
Active Ingredient: VASOPRESSIN
Strength: 40UNITS/100ML (0.4UNITS/ML)
Dosage Form/Route: SOLUTION;INTRAVENOUS
Application: N204485 | Product #003 | TE Code: AP
Applicant: PH HEALTH LTD
Approved: Apr 15, 2020 | RLD: Yes | RS: Yes | Type: RX

PATENTS:
Patent 10010575 | Expires: Jan 30, 2035
Patent 9925233 | Expires: Jan 30, 2035
Patent 9974827 | Expires: Jan 30, 2035
Patent 9968649 | Expires: Jan 30, 2035
Patent 9962422 | Expires: Jan 30, 2035
Patent 9925234 | Expires: Jan 30, 2035
Patent 9981006 | Expires: Jan 30, 2035
Patent 9919026 | Expires: Jan 30, 2035
Patent 12186362 | Expires: Jan 30, 2035